FAERS Safety Report 6270432-8 (Version None)
Quarter: 2009Q3

REPORT INFORMATION
  Report Type: 
  Country: None (occurrence: None)
  Receive Date: 20090716
  Receipt Date: 20090708
  Transmission Date: 20100115
  Serious: Yes (Other)
  Sender: FDA-Public Use
  Company Number: PHHY2009JP28211

PATIENT
  Age: 37 Year
  Sex: Female

DRUGS (4)
  1. CYCLOSPORINE [Suspect]
     Indication: RENAL TRANSPLANT
  2. SIMULECT [Suspect]
     Indication: RENAL TRANSPLANT
     Dosage: 20 MG
  3. MIZORIBINE [Concomitant]
     Indication: RENAL TRANSPLANT
     Dosage: 6 MG/KG
     Route: 048
  4. METHYLPREDNISOLONE [Concomitant]
     Indication: RENAL TRANSPLANT

REACTIONS (1)
  - FOCAL SEGMENTAL GLOMERULOSCLEROSIS [None]
